FAERS Safety Report 10082386 (Version 1)
Quarter: 2014Q2

REPORT INFORMATION
  Report Type: Spontaneous
  Country: US (occurrence: None)
  Receive Date: 20140415
  Receipt Date: 20140415
  Transmission Date: 20141212
  Serious: No
  Sender: FDA-Public Use
  Company Number: None

PATIENT
  Age: 54 Year
  Sex: Male
  Weight: 80.74 kg

DRUGS (13)
  1. OSTEO BIFLEX 5-LOXIN (CHONDRORTIM/GLUCOSAMIHE) [Suspect]
     Indication: OSTEOARTHRITIS
     Route: 048
     Dates: start: 201403
  2. LIDODERM [Concomitant]
  3. VOLTAREN [Concomitant]
  4. ROLLATOR [Concomitant]
  5. CRUTCHES [Concomitant]
  6. BACK BRACE [Concomitant]
  7. MULTI-VITAMINS [Concomitant]
  8. ASPIRIN [Concomitant]
  9. GREEN TEA [Concomitant]
  10. GINSING [Concomitant]
  11. GLUCOSAMIE/CLONDRATIN [Concomitant]
  12. FISH OIL [Concomitant]
  13. MSM [Concomitant]

REACTIONS (2)
  - Abdominal discomfort [None]
  - Nausea [None]
